FAERS Safety Report 12772912 (Version 2)
Quarter: 2016Q4

REPORT INFORMATION
  Report Type: Spontaneous
  Country: IL (occurrence: IL)
  Receive Date: 20160922
  Receipt Date: 20161003
  Transmission Date: 20170207
  Serious: Yes (Hospitalization)
  Sender: FDA-Public Use
  Company Number: IL-REGENERON PHARMACEUTICALS, INC.-2016-21861

PATIENT

DRUGS (1)
  1. EYLEA [Suspect]
     Active Substance: AFLIBERCEPT
     Indication: PRODUCT USED FOR UNKNOWN INDICATION
     Dosage: UNK
     Route: 031
     Dates: start: 201609

REACTIONS (2)
  - Anterior chamber opacity [Unknown]
  - Eye infection [Unknown]

NARRATIVE: CASE EVENT DATE: 201609
